FAERS Safety Report 7229845-X (Version None)
Quarter: 2011Q1

REPORT INFORMATION
  Report Type: 
  Country: None (occurrence: None)
  Receive Date: 20110117
  Receipt Date: 20110105
  Transmission Date: 20110831
  Serious: Yes (Other)
  Sender: FDA-Public Use
  Company Number: PHHY2011GB00752

PATIENT
  Age: 80 Year
  Sex: Male

DRUGS (2)
  1. MICONAZOLE [Interacting]
     Indication: FUNGAL INFECTION
     Route: 061
  2. WARFARIN [Suspect]

REACTIONS (3)
  - INTERNATIONAL NORMALISED RATIO INCREASED [None]
  - CEREBROVASCULAR ACCIDENT [None]
  - DRUG INTERACTION [None]
